FAERS Safety Report 17097578 (Version 1)
Quarter: 2019Q4

REPORT INFORMATION
  Report Type: Report from Study
  Country: US (occurrence: US)
  Receive Date: 20191202
  Receipt Date: 20191202
  Transmission Date: 20200122
  Serious: Yes (Death, Life-Threatening, Other)
  Sender: FDA-Public Use
  Company Number: US-BAYER-2019-209746

PATIENT
  Age: 43 Year
  Sex: Male

DRUGS (4)
  1. PARACETAMOL [Suspect]
     Active Substance: ACETAMINOPHEN
  2. DIPHENHYDRAMINE. [Suspect]
     Active Substance: DIPHENHYDRAMINE
  3. CITALOPRAM [Suspect]
     Active Substance: CITALOPRAM HYDROBROMIDE
  4. RANITIDINE. [Suspect]
     Active Substance: RANITIDINE

REACTIONS (10)
  - Hypotension [None]
  - Thrombocytopenia [None]
  - Pneumonia aspiration [None]
  - Toxicity to various agents [Fatal]
  - Depressed level of consciousness [None]
  - Metabolic acidosis [None]
  - Coma [None]
  - Acute lung injury [None]
  - Acute kidney injury [None]
  - Hepatotoxicity [None]
